FAERS Safety Report 9387049 (Version 1)
Quarter: 2013Q3

REPORT INFORMATION
  Report Type: Spontaneous
  Country: FR (occurrence: FR)
  Receive Date: 20130708
  Receipt Date: 20130708
  Transmission Date: 20140515
  Serious: Yes (Life-Threatening)
  Sender: FDA-Public Use
  Company Number: FR-JNJFOC-20130702056

PATIENT
  Age: 80 Year
  Sex: Male

DRUGS (5)
  1. XARELTO [Suspect]
     Indication: PRODUCT USED FOR UNKNOWN INDICATION
     Route: 048
     Dates: start: 201301
  2. FLECAINE [Concomitant]
     Route: 065
  3. SPECIAFOLDINE [Concomitant]
     Route: 065
  4. TAHOR [Concomitant]
     Route: 065
  5. COVERSYL [Concomitant]
     Route: 065

REACTIONS (3)
  - Hemiplegia [Unknown]
  - Cerebral haematoma [Unknown]
  - Cerebral haemorrhage [Unknown]
